FAERS Safety Report 7650127-6 (Version None)
Quarter: 2011Q3

REPORT INFORMATION
  Report Type: 
  Country: None (occurrence: None)
  Receive Date: 20110727
  Receipt Date: 20110711
  Transmission Date: 20111222
  Serious: Yes (Hospitalization, Other)
  Sender: FDA-Public Use
  Company Number: 2011MA008578

PATIENT
  Age: 18 Month
  Sex: Male

DRUGS (1)
  1. FLUOXETINE [Suspect]
     Indication: GASTROOESOPHAGEAL REFLUX DISEASE
     Dosage: 20 MG; BID; PO
     Route: 048

REACTIONS (22)
  - TOXICITY TO VARIOUS AGENTS [None]
  - DYSURIA [None]
  - SOMNOLENCE [None]
  - HYPOPHAGIA [None]
  - EYES SUNKEN [None]
  - DIARRHOEA [None]
  - EXCORIATION [None]
  - IRRITABILITY [None]
  - HYPERHIDROSIS [None]
  - TACHYCARDIA [None]
  - DERMATITIS DIAPER [None]
  - MOOD ALTERED [None]
  - RASH [None]
  - OVERDOSE [None]
  - FLATULENCE [None]
  - DRY MOUTH [None]
  - DRUG DISPENSING ERROR [None]
  - PALLOR [None]
  - DYSPNOEA [None]
  - WEIGHT DECREASED [None]
  - PYREXIA [None]
  - DECREASED ACTIVITY [None]
